FAERS Safety Report 9650433 (Version 1)
Quarter: 2013Q4

REPORT INFORMATION
  Report Type: Spontaneous
  Country: US (occurrence: US)
  Receive Date: 20131028
  Receipt Date: 20131028
  Transmission Date: 20140711
  Serious: Yes (Hospitalization)
  Sender: FDA-Public Use
  Company Number: US-ROCHE-1294671

PATIENT
  Age: 32 Year
  Sex: Male

DRUGS (5)
  1. BACTRIM [Suspect]
     Indication: PNEUMOCYSTIS JIROVECII PNEUMONIA
     Route: 065
  2. GANCICLOVIR SODIUM [Suspect]
     Indication: MOUTH ULCERATION
     Route: 065
  3. DICLOXACILLIN [Suspect]
     Indication: GINGIVITIS
     Route: 065
  4. LAMIVUDINE [Suspect]
     Indication: HIV INFECTION
     Route: 065
  5. ZIDOVUDINE [Suspect]
     Indication: HIV INFECTION
     Route: 065

REACTIONS (2)
  - Toxic epidermal necrolysis [Recovered/Resolved]
  - Neutropenia [Recovered/Resolved]
